FAERS Safety Report 16771372 (Version 13)
Quarter: 2020Q3

REPORT INFORMATION
  Report Type: Spontaneous
  Country: US (occurrence: US)
  Receive Date: 20190904
  Receipt Date: 20200820
  Transmission Date: 20201102
  Serious: No
  Sender: FDA-Public Use
  Company Number: US-PFIZER INC-2019377136

PATIENT
  Age: 76 Year
  Sex: Female
  Weight: 68.93 kg

DRUGS (2)
  1. TOVIAZ [Suspect]
     Active Substance: FESOTERODINE FUMARATE
     Indication: HYPERTONIC BLADDER
  2. TOVIAZ [Suspect]
     Active Substance: FESOTERODINE FUMARATE
     Indication: INCONTINENCE
     Dosage: 8 MG, 1X/DAY
     Route: 048
     Dates: start: 201901

REACTIONS (6)
  - Anxiety [Recovered/Resolved]
  - Memory impairment [Unknown]
  - Irritability [Unknown]
  - Frustration tolerance decreased [Recovering/Resolving]
  - Nervousness [Unknown]
  - Anger [Unknown]
